FAERS Safety Report 23347719 (Version 1)
Quarter: 2023Q4

REPORT INFORMATION
  Report Type: Report from Study
  Country: GB (occurrence: GB)
  Receive Date: 20231228
  Receipt Date: 20231228
  Transmission Date: 20240110
  Serious: Yes (Hospitalization, Other)
  Sender: FDA-Public Use
  Company Number: GB-TAKEDA-2020TUS059696

PATIENT
  Sex: Female

DRUGS (2)
  1. VEDOLIZUMAB [Suspect]
     Active Substance: VEDOLIZUMAB
     Indication: Colitis ulcerative
     Dosage: 108 MILLIGRAM
     Route: 058
  2. VEDOLIZUMAB [Suspect]
     Active Substance: VEDOLIZUMAB
     Dosage: 108 MILLIGRAM
     Route: 058
     Dates: start: 202311

REACTIONS (7)
  - Colitis ulcerative [Unknown]
  - Gastrointestinal disorder [Unknown]
  - Anxiety [Unknown]
  - Feeling abnormal [Unknown]
  - Back disorder [Unknown]
  - Drug ineffective [Unknown]
  - Dyspnoea [Unknown]
